FAERS Safety Report 12389325 (Version 2)
Quarter: 2016Q2

REPORT INFORMATION
  Report Type: Spontaneous
  Country: BE (occurrence: BE)
  Receive Date: 20160520
  Receipt Date: 20160526
  Transmission Date: 20160815
  Serious: No
  Sender: FDA-Public Use
  Company Number: BE-BAYER-2016-091252

PATIENT
  Age: 81 Year
  Sex: Male

DRUGS (1)
  1. XOFIGO [Suspect]
     Active Substance: RADIUM RA-223 DICHLORIDE
     Indication: PROSTATE CANCER METASTATIC
     Dosage: 55 KBQ/KG
     Dates: start: 20160421, end: 20160421

REACTIONS (5)
  - Soft tissue swelling [None]
  - Pain in jaw [None]
  - Speech disorder [None]
  - Gingival pain [None]
  - Masticatory pain [None]
